FAERS Safety Report 13089147 (Version 1)
Quarter: 2017Q1

REPORT INFORMATION
  Report Type: Spontaneous
  Country: US (occurrence: US)
  Receive Date: 20170105
  Receipt Date: 20170105
  Transmission Date: 20170428
  Serious: Yes (Life-Threatening, Hospitalization, Disabling, Other)
  Sender: FDA-Public Use
  Company Number: None

PATIENT
  Age: 37 Year
  Sex: Female
  Weight: 77.4 kg

DRUGS (1)
  1. ZONISAMIDE. [Suspect]
     Active Substance: ZONISAMIDE
     Indication: MIGRAINE PROPHYLAXIS
     Route: 048
     Dates: start: 20161020, end: 20161115

REACTIONS (12)
  - Rash generalised [None]
  - Pain [None]
  - Pyrexia [None]
  - Urinary tract infection [None]
  - Pruritus generalised [None]
  - Blood urine present [None]
  - Tachycardia [None]
  - Drug-induced liver injury [None]
  - Skin exfoliation [None]
  - Drug reaction with eosinophilia and systemic symptoms [None]
  - Cholelithiasis [None]
  - Rash [None]

NARRATIVE: CASE EVENT DATE: 20161115
